FAERS Safety Report 5271781-2 (Version None)
Quarter: 2007Q1

REPORT INFORMATION
  Report Type: 
  Country: None (occurrence: None)
  Receive Date: 20061214
  Receipt Date: 20060110
  Transmission Date: 20070707
  Serious: Yes (Other)
  Sender: FDA-Public Use
  Company Number: 2006007511

PATIENT
  Sex: Male

DRUGS (2)
  1. BEXTRA [Suspect]
     Indication: INFLAMMATION
     Dates: start: 20030501, end: 20041201
  2. BEXTRA [Suspect]
     Indication: PAIN
     Dates: start: 20030501, end: 20041201

REACTIONS (1)
  - MYOCARDIAL INFARCTION [None]
